FAERS Safety Report 9042095 (Version 1)
Quarter: 2013Q1

REPORT INFORMATION
  Report Type: Report from Study
  Country: US (occurrence: US)
  Receive Date: 20130129
  Receipt Date: 20130129
  Transmission Date: 20140127
  Serious: No
  Sender: FDA-Public Use
  Company Number: US-ABBOTT-12P-163-0908918-00

PATIENT
  Age: 69 Year
  Sex: Male

DRUGS (21)
  1. HUMIRA 40 MG/0.8 ML PEN [Suspect]
     Indication: RHEUMATOID ARTHRITIS
     Dates: start: 20120222
  2. LEVOTHYROXINE [Concomitant]
     Indication: THYROID DISORDER
  3. FOLIC ACID [Concomitant]
     Indication: PRODUCT USED FOR UNKNOWN INDICATION
  4. PREDNISONE [Concomitant]
     Indication: ARTHRITIS
  5. HYDROXYCHLOROQUINE [Concomitant]
     Indication: ARTHRITIS
  6. ETODOLAC [Concomitant]
     Indication: ARTHRITIS
  7. METHOTREXATE [Concomitant]
     Indication: ARTHRITIS
     Dosage: 2.5 TAKES 10 EVERY WEDNESDAY
  8. LOVASTATIN [Concomitant]
     Indication: BLOOD CHOLESTEROL
  9. HYDROCHLOROTHIAZIDE [Concomitant]
     Indication: FLUID RETENTION
  10. SYMBICORT [Concomitant]
     Indication: PULMONARY FIBROSIS
     Dosage: 2 PUFFS, 1 IN MORNING AND 1 IN EVENING
  11. SYMBICORT [Concomitant]
     Indication: CHRONIC OBSTRUCTIVE PULMONARY DISEASE
  12. ALBUTEROL [Concomitant]
     Indication: PULMONARY FIBROSIS
     Dosage: TWICE A DAY, AS REQUIRED
  13. ALBUTEROL [Concomitant]
     Indication: CHRONIC OBSTRUCTIVE PULMONARY DISEASE
  14. SPIRIVA [Concomitant]
     Indication: PULMONARY FIBROSIS
     Dosage: EVERY MORNING
  15. SPIRIVA [Concomitant]
     Indication: CHRONIC OBSTRUCTIVE PULMONARY DISEASE
  16. ASPIRIN [Concomitant]
     Indication: PRODUCT USED FOR UNKNOWN INDICATION
  17. BORAGE SEED OIL [Concomitant]
     Indication: ARTHRITIS
  18. FISH OIL [Concomitant]
     Indication: ARTHRITIS
  19. MULTIVITAMIN [Concomitant]
     Indication: VITAMIN SUPPLEMENTATION
  20. CALIUM [Concomitant]
     Indication: MINERAL SUPPLEMENTATION
  21. VIT D3 [Concomitant]
     Indication: VITAMIN SUPPLEMENTATION

REACTIONS (1)
  - Injection site pain [Recovered/Resolved]
